FAERS Safety Report 12837241 (Version 1)
Quarter: 2016Q4

REPORT INFORMATION
  Report Type: Spontaneous
  Country: US (occurrence: US)
  Receive Date: 20161009
  Receipt Date: 20161009
  Transmission Date: 20170207
  Serious: Yes (Hospitalization)
  Sender: FDA-Public Use
  Company Number: None

PATIENT
  Age: 63 Year
  Sex: Female
  Weight: 54 kg

DRUGS (11)
  1. SILICA [Concomitant]
     Active Substance: SILICON DIOXIDE
  2. MK7 [Concomitant]
  3. CALCIUM [Concomitant]
     Active Substance: CALCIUM
  4. TUMERIC [Concomitant]
     Active Substance: TURMERIC
  5. OMEGAS [Concomitant]
  6. VITAMIN C [Concomitant]
     Active Substance: ASCORBIC ACID
  7. SYNTHESIS [Concomitant]
  8. VITAMIN D3 [Concomitant]
     Active Substance: CHOLECALCIFEROL
  9. VITAMIN SUPPLEMENTS [Concomitant]
     Active Substance: VITAMINS
  10. PROLIA [Suspect]
     Active Substance: DENOSUMAB
     Indication: OSTEOPOROSIS
  11. BORON [Concomitant]
     Active Substance: BORON

REACTIONS (3)
  - Rash [None]
  - Skin infection [None]
  - Quality of life decreased [None]
